FAERS Safety Report 6255750-1 (Version None)
Quarter: 2009Q3

REPORT INFORMATION
  Report Type: 
  Country: None (occurrence: None)
  Receive Date: 20090701
  Receipt Date: 20090619
  Transmission Date: 20100115
  Serious: Yes (Other)
  Sender: FDA-Public Use
  Company Number: GXKR2009DE07100

PATIENT
  Age: 2 Year
  Sex: Female

DRUGS (3)
  1. CARBOPLATIN [Suspect]
     Indication: GLIOMATOSIS CEREBRI
  2. ETOPOSIDE [Suspect]
     Indication: GLIOMATOSIS CEREBRI
  3. VINCRISTINE [Suspect]
     Indication: GLIOMATOSIS CEREBRI

REACTIONS (3)
  - APHASIA [None]
  - ATAXIA [None]
  - NEUROLOGICAL DECOMPENSATION [None]
